FAERS Safety Report 18718116 (Version 2)
Quarter: 2022Q2

REPORT INFORMATION
  Report Type: Report from Study
  Country: US (occurrence: US)
  Receive Date: 20210108
  Receipt Date: 20220601
  Transmission Date: 20220721
  Serious: Yes (Hospitalization)
  Sender: FDA-Public Use
  Company Number: US-NOVARTISPH-NVSC2021US000673

PATIENT
  Sex: Female

DRUGS (1)
  1. ILARIS [Suspect]
     Active Substance: CANAKINUMAB
     Indication: Product used for unknown indication
     Dosage: 300 MG, EVERY 5 WEEKS
     Route: 058
     Dates: start: 2018

REACTIONS (3)
  - Vaccination site movement impairment [Unknown]
  - Oropharyngeal pain [Unknown]
  - Feeding disorder [Unknown]
